FAERS Safety Report 8702232 (Version 2)
Quarter: 2013Q1

REPORT INFORMATION
  Report Type: Report from Study
  Country: GB (occurrence: GB)
  Receive Date: 20120803
  Receipt Date: 20130313
  Transmission Date: 20140127
  Serious: Yes (Death, Hospitalization)
  Sender: FDA-Public Use
  Company Number: GB-CELGENEUS-167-21880-12063743

PATIENT
  Age: 74 Year
  Sex: Female

DRUGS (8)
  1. REVLIMID [Suspect]
     Indication: PLASMA CELL MYELOMA
     Route: 048
     Dates: start: 20120601, end: 20120621
  2. REVLIMID [Suspect]
     Route: 048
     Dates: end: 20120718
  3. DEXAMETHASONE [Suspect]
     Indication: PLASMA CELL MYELOMA
     Route: 048
     Dates: start: 20120601, end: 20120604
  4. DEXAMETHASONE [Suspect]
     Route: 048
     Dates: end: 20120709
  5. CYCLOPHOSPHAMIDE [Suspect]
     Indication: PLASMA CELL MYELOMA
     Route: 048
     Dates: start: 20120601, end: 20120608
  6. CYCLOPHOSPHAMIDE [Suspect]
     Route: 048
     Dates: end: 20120713
  7. ALLOPURINOL [Concomitant]
     Indication: PRODUCT USED FOR UNKNOWN INDICATION
     Route: 065
  8. BLOOD [Concomitant]
     Indication: PRODUCT USED FOR UNKNOWN INDICATION
     Route: 065

REACTIONS (4)
  - Neutropenic sepsis [Fatal]
  - Pneumonia [Fatal]
  - Drug eruption [Not Recovered/Not Resolved]
  - Neutropenic sepsis [Not Recovered/Not Resolved]
